FAERS Safety Report 8843837 (Version 1)
Quarter: 2012Q4

REPORT INFORMATION
  Report Type: 
  Country: US (occurrence: US)
  Receive Date: 20121016
  Receipt Date: 20121016
  Transmission Date: 20130627
  Serious: No
  Sender: FDA-Public Use
  Company Number: US-MYLANLABS-2011S1022173

PATIENT
  Age: 62 Year
  Sex: Female

DRUGS (1)
  1. PINDOLOL [Suspect]
     Indication: PALPITATIONS

REACTIONS (3)
  - Blood pressure increased [Not Recovered/Not Resolved]
  - Product substitution issue [None]
  - Drug ineffective [None]
